FAERS Safety Report 23054384 (Version 1)
Quarter: 2023Q4

REPORT INFORMATION
  Report Type: Spontaneous
  Country: US (occurrence: None)
  Receive Date: 20231010
  Receipt Date: 20231010
  Transmission Date: 20240110
  Serious: Yes (Other)
  Sender: FDA-Public Use
  Company Number: None

PATIENT
  Age: 58 Year
  Sex: Female
  Weight: 90.3 kg

DRUGS (1)
  1. BUPROPION HYDROCHLORIDE [Suspect]
     Active Substance: BUPROPION HYDROCHLORIDE
     Indication: Smoking cessation therapy
     Dosage: FREQUENCY : TWICE A DAY;?
     Route: 048
     Dates: start: 20230602, end: 20230728

REACTIONS (1)
  - Inappropriate affect [None]

NARRATIVE: CASE EVENT DATE: 20230705
